FAERS Safety Report 5991136-2 (Version None)
Quarter: 2008Q4

REPORT INFORMATION
  Report Type: 
  Country: None (occurrence: None)
  Receive Date: 20081211
  Receipt Date: 20080424
  Transmission Date: 20090506
  Serious: No
  Sender: FDA-Public Use
  Company Number: US-AMGEN-KDL268089

PATIENT
  Sex: Female
  Weight: 65 kg

DRUGS (6)
  1. ENBREL [Suspect]
     Indication: PSORIATIC ARTHROPATHY
     Route: 058
     Dates: start: 20080228
  2. NAPROXEN [Concomitant]
     Dates: start: 20070322
  3. ZANTAC [Concomitant]
     Dates: start: 20070503
  4. BUTALBITAL [Concomitant]
     Dates: start: 20071129
  5. UNSPECIFIED CONTRACEPTIVE [Concomitant]
     Dates: start: 20080221
  6. TYLENOL (CAPLET) [Concomitant]
     Dates: start: 20080221

REACTIONS (5)
  - ABDOMINAL PAIN [None]
  - BODY TEMPERATURE DECREASED [None]
  - FATIGUE [None]
  - HOT FLUSH [None]
  - VIRAL INFECTION [None]
